FAERS Safety Report 22192213 (Version 2)
Quarter: 2023Q4

REPORT INFORMATION
  Report Type: Spontaneous
  Country: US (occurrence: US)
  Receive Date: 20230410
  Receipt Date: 20231031
  Transmission Date: 20240110
  Serious: No
  Sender: FDA-Public Use
  Company Number: US-SA-SAC20230406001372

PATIENT
  Age: 48 Year
  Sex: Female
  Weight: 133 kg

DRUGS (14)
  1. DUPIXENT [Suspect]
     Active Substance: DUPILUMAB
     Indication: Dermatitis atopic
     Dosage: 300 MG, QOW
     Route: 058
     Dates: start: 20230324
  2. DUPIXENT [Suspect]
     Active Substance: DUPILUMAB
     Indication: Illness
  3. ACTEMRA [Suspect]
     Active Substance: TOCILIZUMAB
     Dosage: UNK
  4. VITAMIN B COMPLEX [Concomitant]
     Active Substance: CYANOCOBALAMIN\DEXPANTHENOL\NIACINAMIDE\PYRIDOXINE HYDROCHLORIDE\RIBOFLAVIN 5^-PHOSPHATE SODIUM\THIA
     Dosage: UNK
  5. BERBERINE [Concomitant]
     Active Substance: BERBERINE
  6. ARGININE [Concomitant]
     Active Substance: ARGININE
  7. FISH OIL [Concomitant]
     Active Substance: FISH OIL
  8. SERTRALINE HYDROCHLORIDE [Concomitant]
     Active Substance: SERTRALINE HYDROCHLORIDE
  9. LISINOPRIL [Concomitant]
     Active Substance: LISINOPRIL
  10. COENZYME Q10 [Concomitant]
     Active Substance: DIETARY SUPPLEMENT\UBIDECARENONE
  11. CINNAMON\HERBALS [Concomitant]
     Active Substance: CINNAMON\HERBALS
  12. METHYLFOLAT [Concomitant]
  13. FLAXSEED [Concomitant]
     Active Substance: FLAX SEED
  14. CINNAMON [CINNAMOMUM VERUM] [Concomitant]

REACTIONS (5)
  - Lymphadenopathy [Unknown]
  - Pain in jaw [Unknown]
  - Injection site pain [Recovered/Resolved]
  - Oral herpes [Not Recovered/Not Resolved]
  - Condition aggravated [Not Recovered/Not Resolved]

NARRATIVE: CASE EVENT DATE: 20230101
